FAERS Safety Report 5817286-9 (Version None)
Quarter: 2008Q3

REPORT INFORMATION
  Report Type: 
  Country: None (occurrence: None)
  Receive Date: 20080722
  Receipt Date: 20080714
  Transmission Date: 20090109
  Serious: Yes (Other)
  Sender: FDA-Public Use
  Company Number: B0502682A

PATIENT
  Sex: Male

DRUGS (4)
  1. SEROXAT [Suspect]
     Indication: DRUG USE FOR UNKNOWN INDICATION
     Dates: start: 19990101
  2. VENLAFAXINE HCL [Concomitant]
     Dates: start: 20030101
  3. DIPYRIDAMOLE [Concomitant]
     Indication: CEREBROVASCULAR ACCIDENT
     Dosage: 400MG PER DAY
  4. ASPIRIN [Concomitant]
     Indication: CEREBROVASCULAR ACCIDENT
     Dosage: 75MG PER DAY

REACTIONS (8)
  - ANGER [None]
  - DEPRESSED MOOD [None]
  - DRUG WITHDRAWAL SYNDROME [None]
  - EMOTIONAL DISTRESS [None]
  - MOOD SWINGS [None]
  - MORBID THOUGHTS [None]
  - SUICIDAL IDEATION [None]
  - THINKING ABNORMAL [None]
